FAERS Safety Report 12394929 (Version 1)
Quarter: 2016Q2

REPORT INFORMATION
  Report Type: Spontaneous
  Country: US (occurrence: US)
  Receive Date: 20160523
  Receipt Date: 20160523
  Transmission Date: 20160815
  Serious: No
  Sender: FDA-Public Use
  Company Number: US-ALLERGAN-1655274US

PATIENT
  Sex: Male

DRUGS (1)
  1. KYBELLA [Suspect]
     Active Substance: DEOXYCHOLIC ACID
     Indication: PRODUCT USED FOR UNKNOWN INDICATION
     Dosage: 6 ML, SINGLE
     Dates: start: 20160414, end: 20160414

REACTIONS (3)
  - Muscle twitching [Unknown]
  - Wrong technique in product usage process [Unknown]
  - Swelling [Unknown]

NARRATIVE: CASE EVENT DATE: 20160426
